FAERS Safety Report 14122772 (Version 3)
Quarter: 2017Q4

REPORT INFORMATION
  Report Type: Spontaneous
  Country: US (occurrence: US)
  Receive Date: 20171024
  Receipt Date: 20171031
  Transmission Date: 20180321
  Serious: Yes (Other)
  Sender: FDA-Public Use
  Company Number: US-CONCORDIA PHARMACEUTICALS INC.-GSH201710-005925

PATIENT
  Age: 23 Month
  Sex: Male
  Weight: 11.7 kg

DRUGS (2)
  1. ARTEMETHER LUMEFANTRINE [Suspect]
     Active Substance: ARTEMETHER\LUMEFANTRINE
     Indication: PLASMODIUM MALARIAE INFECTION
     Route: 065
     Dates: start: 201509
  2. HYDROXYCHLOROQUINE [Suspect]
     Active Substance: HYDROXYCHLOROQUINE
     Indication: PLASMODIUM MALARIAE INFECTION
     Dosage: 10 MG BASE/KG FOLLOWED BY 6, 24 AND 48 H
     Route: 048

REACTIONS (11)
  - Splenomegaly [Recovered/Resolved]
  - Plasmodium malariae infection [Recovered/Resolved]
  - Hepatomegaly [Recovered/Resolved]
  - Disease recurrence [Recovered/Resolved]
  - Haemoglobin decreased [Unknown]
  - Transferrin saturation decreased [Unknown]
  - Drug ineffective [Recovered/Resolved]
  - Refractory cytopenia with unilineage dysplasia [Recovering/Resolving]
  - Pyrexia [Unknown]
  - Mean cell volume decreased [Unknown]
  - Cardiac murmur [Unknown]

NARRATIVE: CASE EVENT DATE: 201511
